FAERS Safety Report 6306853-4 (Version None)
Quarter: 2009Q3

REPORT INFORMATION
  Report Type: 
  Country: None (occurrence: None)
  Receive Date: 20090812
  Receipt Date: 20090803
  Transmission Date: 20100115
  Serious: Yes (Hospitalization)
  Sender: FDA-Public Use
  Company Number: JP-PFIZER INC-2009251433

PATIENT
  Age: 11 Year

DRUGS (2)
  1. GABAPENTIN [Suspect]
     Indication: PARTIAL SEIZURES
     Dosage: 300 MG, 3X/DAY
     Route: 048
     Dates: start: 20080123, end: 20080126
  2. GABAPENTIN [Suspect]
     Dosage: 200 MG, 3X/DAY
     Dates: start: 20080118, end: 20080122

REACTIONS (1)
  - DRUG ERUPTION [None]
